FAERS Safety Report 18581697 (Version 1)
Quarter: 2020Q4

REPORT INFORMATION
  Report Type: Spontaneous
  Country: US (occurrence: US)
  Receive Date: 20201204
  Receipt Date: 20201204
  Transmission Date: 20210114
  Serious: Yes (Other)
  Sender: FDA-Public Use
  Company Number: US-PFIZER INC-2020479030

PATIENT
  Age: 70 Year
  Sex: Female
  Weight: 51.71 kg

DRUGS (2)
  1. EUCRISA [Suspect]
     Active Substance: CRISABOROLE
     Indication: RASH
  2. EUCRISA [Suspect]
     Active Substance: CRISABOROLE
     Indication: ANGULAR CHEILITIS
     Dosage: UNK (USED IT ONE TIME; MORNING AT 6AM)

REACTIONS (8)
  - Oral discharge [Unknown]
  - Cardiac flutter [Unknown]
  - Off label use [Unknown]
  - Drug ineffective for unapproved indication [Unknown]
  - Oral discomfort [Unknown]
  - Hypersensitivity [Unknown]
  - Condition aggravated [Unknown]
  - Palpitations [Unknown]
